FAERS Safety Report 7865000-8 (Version None)
Quarter: 2011Q4

REPORT INFORMATION
  Report Type: 
  Country: None (occurrence: None)
  Receive Date: 20111028
  Receipt Date: 20100928
  Transmission Date: 20120403
  Serious: No
  Sender: FDA-Public Use
  Company Number: US-GLAXOSMITHKLINE-A0883766A

PATIENT
  Sex: Female

DRUGS (2)
  1. ADVAIR DISKUS 100/50 [Suspect]
     Indication: BRONCHITIS
     Dosage: 1PUFF TWICE PER DAY
     Route: 055
     Dates: start: 20100921, end: 20100927
  2. CIPROFLOXACIN [Concomitant]

REACTIONS (4)
  - PALPITATIONS [None]
  - DIARRHOEA [None]
  - HEADACHE [None]
  - ABDOMINAL PAIN UPPER [None]
